FAERS Safety Report 7827210-5 (Version None)
Quarter: 2011Q4

REPORT INFORMATION
  Report Type: 
  Country: None (occurrence: None)
  Receive Date: 20111020
  Receipt Date: 20111017
  Transmission Date: 20120403
  Serious: Yes (Other)
  Sender: FDA-Public Use
  Company Number: US-AMGEN-USASP2011053639

PATIENT
  Age: 50 Year
  Sex: Female

DRUGS (2)
  1. ENBREL [Suspect]
     Indication: RHEUMATOID ARTHRITIS
     Dosage: 50 MG, QWK
     Dates: start: 20050301
  2. METHOTREXATE [Concomitant]
     Dosage: 1 MG, UNK
     Dates: start: 20050101

REACTIONS (13)
  - ABASIA [None]
  - OTITIS MEDIA [None]
  - PURULENT DISCHARGE [None]
  - PARONYCHIA [None]
  - ORAL FUNGAL INFECTION [None]
  - DISABILITY [None]
  - EAR INFECTION [None]
  - DRUG EFFECT DECREASED [None]
  - GINGIVAL DISORDER [None]
  - FUNGAL OESOPHAGITIS [None]
  - DEAFNESS [None]
  - VULVOVAGINAL MYCOTIC INFECTION [None]
  - RHEUMATOID ARTHRITIS [None]
